FAERS Safety Report 8486386-X (Version None)
Quarter: 2012Q3

REPORT INFORMATION
  Report Type: 
  Country: None (occurrence: None)
  Receive Date: 20120703
  Receipt Date: 20120625
  Transmission Date: 20120928
  Serious: Yes (Hospitalization)
  Sender: FDA-Public Use
  Company Number: JP-GLAXOSMITHKLINE-B0811391A

PATIENT
  Age: 66 Year
  Sex: Male

DRUGS (3)
  1. PEON [Concomitant]
     Route: 048
  2. LYRICA [Concomitant]
     Route: 048
  3. VALTREX [Suspect]
     Indication: HERPES ZOSTER
     Dosage: 3000MG TWICE PER DAY
     Route: 048
     Dates: start: 20120530, end: 20120605

REACTIONS (1)
  - HAEMORRHAGE SUBCUTANEOUS [None]
